FAERS Safety Report 13120206 (Version 2)
Quarter: 2017Q1

REPORT INFORMATION
  Report Type: Spontaneous
  Country: US (occurrence: US)
  Receive Date: 20170117
  Receipt Date: 20170208
  Transmission Date: 20170428
  Serious: No
  Sender: FDA-Public Use
  Company Number: US-TEVA-707388USA

PATIENT
  Sex: Male

DRUGS (1)
  1. PROAIR RESPICLICK [Suspect]
     Active Substance: ALBUTEROL SULFATE
     Dosage: INHALE TWO PUFFS BY MOUTH EVERY 4 HOURS AS NEEDED
     Route: 048

REACTIONS (1)
  - Wrong technique in product usage process [Unknown]
